FAERS Safety Report 15128710 (Version 2)
Quarter: 2018Q3

REPORT INFORMATION
  Report Type: Spontaneous
  Country: JP (occurrence: JP)
  Receive Date: 20180711
  Receipt Date: 20180725
  Transmission Date: 20181010
  Serious: No
  Sender: FDA-Public Use
  Company Number: US-ASTRAZENECA-2018SE88197

PATIENT
  Age: 1 Year
  Sex: Male
  Weight: 5.2 kg

DRUGS (9)
  1. SYNAGIS [Suspect]
     Active Substance: PALIVIZUMAB
     Indication: PREMATURE BABY
     Dosage: 30 MG ON (28?JAN?2018), 50 MG ON (22?FEB?2018), 70 MG ON (22?MAR?2018), 80 MG ON (26?APR?2018),
     Route: 030
     Dates: start: 20180128, end: 20180426
  2. ROTAVIRUS VACCINE [Suspect]
     Active Substance: HUMAN ROTAVIRUS A
     Indication: PROPHYLAXIS
     Route: 065
     Dates: start: 20180502, end: 20180502
  3. FERRIC PYROPHOSPHATE [Concomitant]
     Active Substance: FERRIC PYROPHOSPHATE
     Indication: ANAEMIA
     Dates: start: 20180629
  4. HAEMOPHILUS B CONJUGATE VACCINE NOS [Suspect]
     Active Substance: HAEMOPHILUS B CONJUGATE VACCINE
     Indication: PROPHYLAXIS
     Route: 065
     Dates: start: 20180627, end: 20180627
  5. DPT [Suspect]
     Active Substance: DIPHTHERIA AND TETANUS TOXOIDS AND PERTUSSIS VACCINE
     Indication: PROPHYLAXIS
     Route: 065
     Dates: start: 20180627, end: 20180627
  6. FERRIC PYROPHOSPHATE [Concomitant]
     Active Substance: FERRIC PYROPHOSPHATE
     Indication: ANAEMIA
     Dosage: SOLUBLE
     Route: 048
     Dates: start: 20180427, end: 20180628
  7. BCG VACCINE [Suspect]
     Active Substance: BCG VACCINE
     Indication: PROPHYLAXIS
     Route: 065
     Dates: start: 20180627, end: 20180627
  8. STREPTOCOCCUS PYOGENES [Suspect]
     Active Substance: STREPTOCOCCUS PYOGENES
     Indication: PROPHYLAXIS
     Route: 065
     Dates: start: 20180627, end: 20180627
  9. POLIOMYELITIS VACCINE NOS [Suspect]
     Active Substance: POLIOMYELITIS VACCINE
     Indication: PROPHYLAXIS
     Route: 065
     Dates: start: 20180627, end: 20180627

REACTIONS (7)
  - Coagulopathy [Not Recovered/Not Resolved]
  - Purpura [Not Recovered/Not Resolved]
  - Haemorrhagic diathesis [Unknown]
  - Thrombasthenia [Unknown]
  - Petechiae [Unknown]
  - Platelet dysfunction [Unknown]
  - Injection site haemorrhage [Unknown]

NARRATIVE: CASE EVENT DATE: 2018
